FAERS Safety Report 19836265 (Version 1)
Quarter: 2021Q3

REPORT INFORMATION
  Report Type: Spontaneous
  Country: IT (occurrence: IT)
  Receive Date: 20210916
  Receipt Date: 20210916
  Transmission Date: 20211014
  Serious: Yes (Other)
  Sender: FDA-Public Use
  Company Number: IT-AUROBINDO-AUR-APL-2021-038962

PATIENT
  Sex: Male
  Weight: 89 kg

DRUGS (11)
  1. RIOCIGUAT. [Suspect]
     Active Substance: RIOCIGUAT
     Dosage: 6 MILLIGRAM
     Route: 048
     Dates: start: 20171212
  2. OPSUMIT [Suspect]
     Active Substance: MACITENTAN
     Indication: PULMONARY ARTERIAL HYPERTENSION
     Dosage: 10 MILLIGRAM
     Route: 048
     Dates: start: 20150101
  3. AMIODARONE [Concomitant]
     Active Substance: AMIODARONE
     Indication: ATRIAL FLUTTER
     Dosage: UNK
     Route: 048
     Dates: start: 20150101
  4. RIOCIGUAT. [Suspect]
     Active Substance: RIOCIGUAT
     Indication: PRODUCT USED FOR UNKNOWN INDICATION
     Dosage: 3 MILLIGRAM
     Route: 048
     Dates: start: 20171201
  5. RIOCIGUAT. [Suspect]
     Active Substance: RIOCIGUAT
     Dosage: 4.5 MILLIGRAM
     Route: 048
     Dates: start: 20171215
  6. WARFARIN [Concomitant]
     Active Substance: WARFARIN
     Indication: PULMONARY ARTERIAL HYPERTENSION
     Dosage: UNK
     Route: 048
     Dates: start: 19870101
  7. ROSUVASTATIN. [Concomitant]
     Active Substance: ROSUVASTATIN
     Indication: DYSLIPIDAEMIA
     Dosage: UNK
     Route: 048
     Dates: start: 20170714
  8. SILDENAFIL FILM?COATED TABLET [Suspect]
     Active Substance: SILDENAFIL
     Indication: PULMONARY ARTERIAL HYPERTENSION
     Dosage: 60 MILLIGRAM
     Route: 048
     Dates: start: 20090101
  9. RIOCIGUAT. [Suspect]
     Active Substance: RIOCIGUAT
     Dosage: 7.5 MILLIGRAM
     Route: 048
     Dates: start: 20180112
  10. FUROSEMIDE. [Concomitant]
     Active Substance: FUROSEMIDE
     Indication: PULMONARY ARTERIAL HYPERTENSION
     Dosage: UNK
     Route: 048
     Dates: start: 20170109
  11. UPTRAVI [Suspect]
     Active Substance: SELEXIPAG
     Indication: PULMONARY ARTERIAL HYPERTENSION
     Dosage: 400 MICROGRAM
     Route: 048
     Dates: start: 20210825

REACTIONS (1)
  - Pulmonary arterial hypertension [Unknown]
